FAERS Safety Report 5071310-2 (Version None)
Quarter: 2006Q3

REPORT INFORMATION
  Report Type: 
  Country: None (occurrence: None)
  Receive Date: 20060804
  Receipt Date: 20051212
  Transmission Date: 20061208
  Serious: No
  Sender: FDA-Public Use
  Company Number: US-AMGEN-US161030

PATIENT
  Sex: Female

DRUGS (3)
  1. ARANESP [Suspect]
     Indication: ANAEMIA OF MALIGNANT DISEASE
     Route: 058
     Dates: start: 20051101
  2. THALIDOMIDE [Concomitant]
  3. CORTICOSTEROID NOS [Concomitant]

REACTIONS (4)
  - ANAEMIA [None]
  - ANOREXIA [None]
  - RESPIRATORY TRACT INFECTION VIRAL [None]
  - STOMACH DISCOMFORT [None]
